FAERS Safety Report 5194221-0 (Version None)
Quarter: 2006Q4

REPORT INFORMATION
  Report Type: 
  Country: None (occurrence: None)
  Receive Date: 20061228
  Receipt Date: 20061205
  Transmission Date: 20070319
  Serious: Yes (Life-Threatening, Other)
  Sender: FDA-Public Use
  Company Number: FR-PFIZER INC-2006150069

PATIENT
  Sex: Male
  Weight: 48 kg

DRUGS (4)
  1. LYRICA [Suspect]
     Indication: NEURALGIA
     Route: 048
  2. RIVOTRIL [Concomitant]
     Indication: NEURALGIA
     Route: 048
  3. EFFERALGAN CODEINE [Concomitant]
     Indication: PAIN IN EXTREMITY
     Route: 048
  4. ACETAMINOPHEN W/ PROPOXYPHENE HCL [Concomitant]
     Indication: PAIN IN EXTREMITY
     Route: 048

REACTIONS (5)
  - AGGRESSION [None]
  - AMNESIA [None]
  - MENTAL DISORDER [None]
  - PSYCHOMOTOR HYPERACTIVITY [None]
  - SUICIDAL IDEATION [None]
